FAERS Safety Report 8875391 (Version 3)
Quarter: 2012Q4

REPORT INFORMATION
  Report Type: Report from Study
  Country: US (occurrence: US)
  Receive Date: 20121029
  Receipt Date: 20121221
  Transmission Date: 20130627
  Serious: Yes (Hospitalization)
  Sender: FDA-Public Use
  Company Number: US-JNJFOC-20121011509

PATIENT
  Age: 79 Year
  Sex: Female

DRUGS (6)
  1. REMICADE [Suspect]
     Indication: RHEUMATOID ARTHRITIS
     Route: 042
  2. REMICADE [Suspect]
     Indication: RHEUMATOID ARTHRITIS
     Dosage: 28-OCT-2012 (future date)
     Route: 042
  3. UNSPECIFED MEDICATIONS [Concomitant]
     Indication: CATARACT OPERATION
  4. OMEGA-3 [Concomitant]
     Route: 065
  5. FOLIC ACID [Concomitant]
     Route: 065
  6. CALCIUM [Concomitant]
     Route: 065

REACTIONS (3)
  - Cerebrovascular accident [Recovering/Resolving]
  - Balance disorder [Recovered/Resolved]
  - Vomiting [Recovering/Resolving]
